FAERS Safety Report 14818915 (Version 1)
Quarter: 2018Q2

REPORT INFORMATION
  Report Type: Report from Study
  Country: CN (occurrence: CN)
  Receive Date: 20180427
  Receipt Date: 20180427
  Transmission Date: 20180711
  Serious: Yes (Other)
  Sender: FDA-Public Use
  Company Number: CN-ROCHE-2111877

PATIENT

DRUGS (1)
  1. CAPECITABINE. [Suspect]
     Active Substance: CAPECITABINE
     Indication: PANCREATIC CARCINOMA
     Dosage: ON DAY1-14 OF A CYCLE, 21 DAYS ONE CYCLE
     Route: 048

REACTIONS (11)
  - Nausea [Unknown]
  - Diarrhoea [Unknown]
  - Palmar-plantar erythrodysaesthesia syndrome [Unknown]
  - Bone marrow failure [Unknown]
  - Vomiting [Unknown]
  - Platelet count decreased [Unknown]
  - Renal impairment [Unknown]
  - Thrombocytopenia [Unknown]
  - White blood cell count decreased [Unknown]
  - Intestinal obstruction [Unknown]
  - Hepatic function abnormal [Unknown]
